FAERS Safety Report 24576038 (Version 1)
Quarter: 2024Q4

REPORT INFORMATION
  Report Type: Spontaneous
  Country: US (occurrence: None)
  Receive Date: 20241101
  Receipt Date: 20241101
  Transmission Date: 20250115
  Serious: Yes (Other)
  Sender: Public
  Company Number: None

PATIENT
  Age: 12 Year
  Sex: Male
  Weight: 34.2 kg

DRUGS (2)
  1. XOLAIR [Suspect]
     Active Substance: OMALIZUMAB
     Indication: Food allergy
     Dosage: 225 MG EVERY 4 WEEKS SUBCUTANEOUS
     Route: 058
     Dates: start: 20240814, end: 20241023
  2. XOLAIR [Suspect]
     Active Substance: OMALIZUMAB
     Indication: Food allergy
     Dosage: 225 MG EVERY 4 WEEKS SUBCUTANEOUS ?
     Route: 058
     Dates: start: 20240814, end: 20241023

REACTIONS (4)
  - Arthralgia [None]
  - Gait inability [None]
  - Lymphadenopathy [None]
  - Abdominal lymphadenopathy [None]

NARRATIVE: CASE EVENT DATE: 20241026
